FAERS Safety Report 8936038 (Version 1)
Quarter: 2012Q4

REPORT INFORMATION
  Report Type: 
  Country: US (occurrence: US)
  Receive Date: 20121130
  Receipt Date: 20121130
  Transmission Date: 20130627
  Serious: No
  Sender: FDA-Public Use
  Company Number: US-ABBOTT-12P-163-0983821-00

PATIENT
  Sex: Female
  Weight: 59.02 kg

DRUGS (2)
  1. ANDROGEL [Suspect]
     Indication: EXPOSURE VIA DIRECT CONTACT
  2. SEVERAL UNKNOWN MEDICATIONS [Concomitant]
     Indication: PRODUCT USED FOR UNKNOWN INDICATION

REACTIONS (3)
  - Joint swelling [Not Recovered/Not Resolved]
  - Generalised oedema [Not Recovered/Not Resolved]
  - Exposure via direct contact [Not Recovered/Not Resolved]
